FAERS Safety Report 9802116 (Version 1)
Quarter: 2014Q1

REPORT INFORMATION
  Report Type: Spontaneous
  Country: GB (occurrence: GB)
  Receive Date: 20140107
  Receipt Date: 20140107
  Transmission Date: 20141002
  Serious: Yes (Hospitalization)
  Sender: FDA-Public Use
  Company Number: GB-WATSON-2013-23958

PATIENT
  Age: 57 Year
  Sex: 0

DRUGS (9)
  1. PHENOXYMETHYLPENICILLIN (UNKNOWN) [Suspect]
     Indication: PRODUCT USED FOR UNKNOWN INDICATION
     Dosage: 500 MG, BID; LONG TERM
     Route: 048
     Dates: end: 20111111
  2. CIPROFLOXACIN LACTATE (UNKNOWN) [Suspect]
     Indication: PRODUCT USED FOR UNKNOWN INDICATION
     Dosage: 400 MG, BID
     Route: 042
     Dates: start: 20111102, end: 201111
  3. CIPROFLOXACIN LACTATE (UNKNOWN) [Suspect]
     Dosage: 400 MG, BID
     Route: 042
     Dates: start: 20111017
  4. CEFUROXIME SODIUM (UNKNOWN) [Suspect]
     Indication: PRODUCT USED FOR UNKNOWN INDICATION
     Dosage: 1.5 G, UNKNOWN
     Route: 042
     Dates: start: 20111103, end: 20111103
  5. TAZOCIN [Suspect]
     Indication: PRODUCT USED FOR UNKNOWN INDICATION
     Dosage: 4.5 G, BID
     Route: 042
     Dates: start: 20111207, end: 20111211
  6. CEFALEXIN [Concomitant]
     Indication: PRODUCT USED FOR UNKNOWN INDICATION
     Dosage: 500 MG, TID
     Route: 065
     Dates: start: 20110909
  7. FLUCLOXACILLIN [Concomitant]
     Indication: PRODUCT USED FOR UNKNOWN INDICATION
     Dosage: 500 MG, QID
     Route: 065
     Dates: start: 20110905
  8. METRONIDAZOLE [Concomitant]
     Indication: PRODUCT USED FOR UNKNOWN INDICATION
     Dosage: 400 MG, TID
     Route: 065
     Dates: start: 20110909
  9. METRONIDAZOLE [Concomitant]
     Dosage: 400 MG, TID
     Route: 065
     Dates: start: 20111017

REACTIONS (1)
  - Clostridium difficile infection [Recovered/Resolved]
